FAERS Safety Report 8529590 (Version 2)
Quarter: 2012Q4

REPORT INFORMATION
  Report Type: Report from Study
  Country: GR (occurrence: GR)
  Receive Date: 20120425
  Receipt Date: 20121105
  Transmission Date: 20130627
  Serious: Yes (Hospitalization, Other)
  Sender: FDA-Public Use
  Company Number: GR-UCBSA-052337

PATIENT
  Age: 45 Year
  Sex: Male
  Weight: 77 kg

DRUGS (8)
  1. NEUPRO [Suspect]
     Indication: PARKINSON^S DISEASE
     Route: 062
     Dates: start: 20110221, end: 20111229
  2. NEUPRO [Suspect]
     Indication: PARKINSON^S DISEASE
     Route: 062
     Dates: start: 20110214, end: 20110220
  3. NEUPRO [Suspect]
     Indication: PARKINSON^S DISEASE
     Route: 062
     Dates: start: 20110207, end: 20110213
  4. MIRAPEXIN [Suspect]
     Indication: PARKINSON^S DISEASE
     Dates: start: 20110208, end: 20111229
  5. MIRAPEXIN [Suspect]
     Indication: PARKINSON^S DISEASE
     Dates: start: 200111, end: 20110207
  6. STALEVO [Suspect]
     Indication: PARKINSON^S DISEASE
     Dates: start: 20070715, end: 20111229
  7. MILITHIN [Concomitant]
     Indication: BIPOLAR DISORDER
     Dates: start: 20100503, end: 20120505
  8. SEROQUEL [Concomitant]
     Indication: BIPOLAR DISORDER
     Dates: start: 20100503, end: 20120605

REACTIONS (1)
  - Parkinson^s disease [Recovering/Resolving]
